FAERS Safety Report 17195262 (Version 1)
Quarter: 2019Q4

REPORT INFORMATION
  Report Type: Spontaneous
  Country: US (occurrence: US)
  Receive Date: 20191202
  Receipt Date: 20191202
  Transmission Date: 20200122
  Serious: Yes (Death, Hospitalization)
  Sender: FDA-Public Use
  Company Number: None

PATIENT
  Age: 74 Year
  Sex: Male
  Weight: 92.99 kg

DRUGS (22)
  1. LANTUS [Concomitant]
     Active Substance: INSULIN GLARGINE
  2. SOLAR VM-75 [Concomitant]
  3. ALLOPRINOL [Concomitant]
  4. QNASL (BECLOMETHASONE DIPROPIONATE) [Concomitant]
  5. WELLBUTRIN XL [Concomitant]
     Active Substance: BUPROPION HYDROCHLORIDE
  6. CLARITIN [Concomitant]
     Active Substance: LORATADINE
  7. LIOTHYRONINE SODIUM. [Concomitant]
     Active Substance: LIOTHYRONINE SODIUM
  8. NUCYNTA [Concomitant]
     Active Substance: TAPENTADOL HYDROCHLORIDE
  9. ENTRESTO [Suspect]
     Active Substance: SACUBITRIL\VALSARTAN
     Indication: CARDIAC FAILURE
     Dosage: ?          QUANTITY:24-26MG;?
     Route: 048
     Dates: start: 20180727, end: 20180808
  10. ASPIRIN. [Concomitant]
     Active Substance: ASPIRIN
  11. PANTOPRAZOLE SODIUM. [Concomitant]
     Active Substance: PANTOPRAZOLE SODIUM
  12. FUROSEMIDE. [Concomitant]
     Active Substance: FUROSEMIDE
  13. VITAMIN C, WITH ROSE HIPS [Concomitant]
  14. POTASSIUM GLUCONATE [Concomitant]
     Active Substance: POTASSIUM GLUCONATE
  15. RAPAFLO [Concomitant]
     Active Substance: SILODOSIN
  16. POTASSIUM CHLORIDE. [Concomitant]
     Active Substance: POTASSIUM CHLORIDE
  17. VITAMIN D3 [Concomitant]
     Active Substance: CHOLECALCIFEROL
  18. PROBIOTIC [Concomitant]
     Active Substance: PROBIOTICS NOS
  19. EFFEXOR XR [Concomitant]
     Active Substance: VENLAFAXINE HYDROCHLORIDE
  20. ELIQUIS [Concomitant]
     Active Substance: APIXABAN
  21. LYRICA [Concomitant]
     Active Substance: PREGABALIN
  22. EPLEENONE [Concomitant]

REACTIONS (2)
  - Fall [None]
  - Seizure [None]

NARRATIVE: CASE EVENT DATE: 20180730
